FAERS Safety Report 6290573-9 (Version None)
Quarter: 2009Q3

REPORT INFORMATION
  Report Type: 
  Country: None (occurrence: None)
  Receive Date: 20090728
  Receipt Date: 20090728
  Transmission Date: 20100115
  Serious: Yes (Hospitalization)
  Sender: FDA-Public Use
  Company Number: None

PATIENT
  Age: 58 Year
  Sex: Male
  Weight: 141.1 kg

DRUGS (1)
  1. ATENOLOL [Suspect]
     Indication: HYPERTENSION
     Dosage: 50 MG EVERY DAY PO
     Route: 048
     Dates: start: 20021216, end: 20090723

REACTIONS (1)
  - SYNCOPE [None]
